FAERS Safety Report 4975942-9 (Version None)
Quarter: 2006Q2

REPORT INFORMATION
  Report Type: 
  Country: None (occurrence: None)
  Receive Date: 20060418
  Receipt Date: 20060104
  Transmission Date: 20061013
  Serious: Yes (Hospitalization)
  Sender: FDA-Public Use
  Company Number: US-MERCK-0601USA00538

PATIENT
  Age: 75 Year
  Sex: Female
  Weight: 73 kg

DRUGS (25)
  1. VIOXX [Suspect]
     Route: 048
     Dates: start: 19990802, end: 20040615
  2. VIOXX [Suspect]
     Route: 048
     Dates: start: 19990802, end: 20040615
  3. VIOXX [Suspect]
     Route: 048
     Dates: start: 19990802, end: 20040615
  4. CARDIZEM [Concomitant]
     Route: 065
     Dates: start: 19960101
  5. ASPIRIN [Concomitant]
     Indication: ISCHAEMIC HEART DISEASE PROPHYLAXIS
     Route: 065
     Dates: start: 19960101
  6. ZOCOR [Concomitant]
     Indication: BLOOD CHOLESTEROL INCREASED
     Route: 065
     Dates: start: 19960101
  7. PRILOSEC [Concomitant]
     Route: 065
  8. CYTOTEC [Concomitant]
     Route: 065
  9. ALLEGRA [Concomitant]
     Route: 065
  10. FLONASE [Concomitant]
     Route: 065
  11. LORAZEPAM [Concomitant]
     Indication: ANXIETY
     Route: 065
  12. LORAZEPAM [Concomitant]
     Indication: SLEEP DISORDER
     Route: 065
  13. LOTRONEX [Concomitant]
     Route: 065
  14. TEVETEN [Concomitant]
     Route: 065
  15. PHENAZOPYRIDINE HYDROCHLORIDE [Concomitant]
     Route: 065
  16. DETROL [Concomitant]
     Route: 065
  17. URISED TABLETS [Concomitant]
     Route: 065
  18. [THERAPY UNSPECIFIED] [Concomitant]
     Route: 065
  19. OCUFLOX [Concomitant]
     Route: 065
  20. ESTRING [Concomitant]
     Route: 065
  21. METHOCARBAMOL [Concomitant]
     Route: 065
  22. ACIPHEX [Concomitant]
     Route: 065
  23. LEVAQUIN [Concomitant]
     Route: 065
  24. PROTONIX [Concomitant]
     Route: 065
  25. NEOPOLYDEX [Concomitant]
     Route: 065

REACTIONS (32)
  - ABDOMINAL PAIN [None]
  - AMNESIA [None]
  - ANXIETY DISORDER [None]
  - BACK DISORDER [None]
  - BACK PAIN [None]
  - BRAIN NEOPLASM [None]
  - CALCIUM DEFICIENCY [None]
  - CEREBRAL ISCHAEMIA [None]
  - CEREBROVASCULAR ACCIDENT [None]
  - CORONARY ARTERY DISEASE [None]
  - CUTIS LAXA [None]
  - CYSTOCELE [None]
  - DYSGRAPHIA [None]
  - DYSPEPSIA [None]
  - EYE DISORDER [None]
  - FIBROMYALGIA [None]
  - GASTROOESOPHAGEAL REFLUX DISEASE [None]
  - HEADACHE [None]
  - HERNIA [None]
  - HORMONE LEVEL ABNORMAL [None]
  - HYPERCHOLESTEROLAEMIA [None]
  - HYPERTENSION [None]
  - IRRITABLE BOWEL SYNDROME [None]
  - JOINT INJURY [None]
  - LUNG NEOPLASM [None]
  - MENOPAUSE [None]
  - NON-CARDIAC CHEST PAIN [None]
  - OSTEOARTHRITIS [None]
  - PAIN [None]
  - PANCREATIC MASS [None]
  - SKIN CANCER [None]
  - SPEECH DISORDER [None]
